FAERS Safety Report 21577960 (Version 1)
Quarter: 2022Q4

REPORT INFORMATION
  Report Type: Spontaneous
  Country: IN (occurrence: IN)
  Receive Date: 20221110
  Receipt Date: 20221110
  Transmission Date: 20230113
  Serious: Yes (Other)
  Sender: FDA-Public Use
  Company Number: IN-ViiV Healthcare Limited-IN2022GSK159630

PATIENT

DRUGS (3)
  1. LAMIVUDINE [Suspect]
     Active Substance: LAMIVUDINE
     Indication: HIV infection
     Dosage: UNK
  2. TENOFOVIR DISOPROXIL FUMARATE [Suspect]
     Active Substance: TENOFOVIR DISOPROXIL FUMARATE
     Indication: HIV infection
     Dosage: UNK
  3. EFAVIRENZ [Suspect]
     Active Substance: EFAVIRENZ
     Indication: HIV infection
     Dosage: UNK

REACTIONS (10)
  - Epidermodysplasia verruciformis [Recovering/Resolving]
  - Rash [Recovering/Resolving]
  - Skin hypopigmentation [Unknown]
  - Papule [Recovering/Resolving]
  - Skin plaque [Recovering/Resolving]
  - Koebner phenomenon [Unknown]
  - Skin lesion [Recovering/Resolving]
  - Hyperkeratosis [Unknown]
  - Acanthosis [Unknown]
  - Papilloma [Unknown]
